FAERS Safety Report 6824762-9 (Version None)
Quarter: 2010Q3

REPORT INFORMATION
  Report Type: 
  Country: None (occurrence: None)
  Receive Date: 20100708
  Receipt Date: 20061116
  Transmission Date: 20110219
  Serious: No
  Sender: FDA-Public Use
  Company Number: US-PFIZER INC-2006147179

PATIENT
  Sex: Female
  Weight: 63.5 kg

DRUGS (9)
  1. CHANTIX [Suspect]
     Indication: SMOKING CESSATION THERAPY
     Dates: start: 20061101
  2. ADVAIR DISKUS 100/50 [Concomitant]
  3. MOMETASONE FUROATE [Concomitant]
  4. SPIRIVA [Concomitant]
  5. MONTELUKAST [Concomitant]
  6. LITHIUM CARBONATE [Concomitant]
  7. RISPERDAL [Concomitant]
  8. TRILEPTAL [Concomitant]
  9. MAGALDRATE [Concomitant]

REACTIONS (1)
  - RASH [None]
